FAERS Safety Report 7002029-6 (Version None)
Quarter: 2010Q3

REPORT INFORMATION
  Report Type: 
  Country: None (occurrence: None)
  Receive Date: 20100920
  Receipt Date: 20100913
  Transmission Date: 20110219
  Serious: No
  Sender: FDA-Public Use
  Company Number: IT-EISAI INC.-E2090-01315-SPO-IT

PATIENT
  Sex: Female
  Weight: 20.5 kg

DRUGS (2)
  1. ZONEGRAN [Suspect]
     Indication: EPILEPSY
     Route: 048
     Dates: start: 20100701
  2. ZONEGRAN [Suspect]
     Route: 048

REACTIONS (5)
  - BLOOD CREATINE PHOSPHOKINASE INCREASED [None]
  - CONVULSION [None]
  - MUSCLE SPASTICITY [None]
  - PYREXIA [None]
  - TACHYCARDIA [None]
